FAERS Safety Report 6629619-4 (Version None)
Quarter: 2010Q1

REPORT INFORMATION
  Report Type: 
  Country: None (occurrence: None)
  Receive Date: 20100311
  Receipt Date: 20100226
  Transmission Date: 20100710
  Serious: Yes (Other)
  Sender: FDA-Public Use
  Company Number: US-ELI_LILLY_AND_COMPANY-US201002001210

PATIENT
  Sex: Female

DRUGS (8)
  1. FORTEO [Suspect]
     Indication: OSTEOPOROSIS
     Dosage: 20 UG, DAILY (1/D)
     Route: 065
     Dates: start: 20100120
  2. PHENOBARBITAL [Concomitant]
     Dosage: 30 MG, 3/D
     Route: 065
  3. RAMIPRIL [Concomitant]
     Dosage: 5 MG, DAILY (1/D)
     Route: 065
  4. VITAMIN D [Concomitant]
     Dosage: 50000 IU, WEEKLY (1/W)
     Route: 065
  5. VITAMIN D [Concomitant]
     Dosage: 600 MG, DAILY (1/D)
     Route: 065
  6. LIPITOR [Concomitant]
     Dosage: 10 MG, DAILY (1/D)
     Route: 065
  7. CALCIUM [Concomitant]
     Dosage: 1200 MG, DAILY (1/D)
     Route: 065
  8. PRILOSEC [Concomitant]
     Dosage: UNK, UNKNOWN
     Route: 065

REACTIONS (2)
  - FATIGUE [None]
  - PARTIAL SEIZURES [None]
